FAERS Safety Report 12480706 (Version 1)
Quarter: 2016Q2

REPORT INFORMATION
  Report Type: Spontaneous
  Country: IT (occurrence: IT)
  Receive Date: 20160620
  Receipt Date: 20160620
  Transmission Date: 20160815
  Serious: Yes (Other)
  Sender: FDA-Public Use
  Company Number: IT-JNJFOC-20160610627

PATIENT

DRUGS (2)
  1. SOFOSBUVIR [Suspect]
     Active Substance: SOFOSBUVIR
     Indication: HEPATITIS C
     Route: 065
  2. SIMEPREVIR [Suspect]
     Active Substance: SIMEPREVIR
     Indication: HEPATITIS C
     Route: 065

REACTIONS (7)
  - Fatigue [Unknown]
  - Remission not achieved [Unknown]
  - Photosensitivity reaction [Unknown]
  - Gastrointestinal disorder [Unknown]
  - Insomnia [Unknown]
  - Hyperbilirubinaemia [Unknown]
  - Anaemia [Unknown]
